FAERS Safety Report 10046953 (Version 1)
Quarter: 2014Q1

REPORT INFORMATION
  Report Type: Spontaneous
  Country: GB (occurrence: GB)
  Receive Date: 20140331
  Receipt Date: 20140331
  Transmission Date: 20141002
  Serious: Yes (Life-Threatening)
  Sender: FDA-Public Use
  Company Number: GB-MYLANLABS-2014S1006594

PATIENT
  Age: 69 Year
  Sex: Male

DRUGS (4)
  1. LANSOPRAZOLE [Suspect]
     Indication: HELICOBACTER INFECTION
     Route: 048
     Dates: start: 20140211, end: 20140228
  2. AMOXICILLIN [Concomitant]
     Indication: HELICOBACTER INFECTION
     Dates: start: 20140211, end: 20140218
  3. CLARITHROMYCIN [Concomitant]
     Indication: HELICOBACTER INFECTION
     Dates: start: 20140211, end: 20140218
  4. INDAPAMIDE [Concomitant]
     Indication: HYPERTENSION
     Dates: start: 20131205

REACTIONS (1)
  - Suicidal ideation [Not Recovered/Not Resolved]
